FAERS Safety Report 24227836 (Version 1)
Quarter: 2024Q3

REPORT INFORMATION
  Report Type: Spontaneous
  Country: US (occurrence: US)
  Receive Date: 20240820
  Receipt Date: 20240820
  Transmission Date: 20241017
  Serious: No
  Sender: REGENERON
  Company Number: US-REGENERON PHARMACEUTICALS, INC.-2024-030809

PATIENT
  Sex: Female

DRUGS (1)
  1. PRALUENT [Suspect]
     Active Substance: ALIROCUMAB
     Indication: Hypercholesterolaemia
     Dosage: 150 MG, Q2W
     Route: 058
     Dates: start: 20231229

REACTIONS (6)
  - Malaise [Unknown]
  - Feeding disorder [Unknown]
  - Illness [Recovered/Resolved]
  - Movement disorder [Unknown]
  - Bronchitis [Unknown]
  - Cough [Unknown]
